FAERS Safety Report 14586539 (Version 2)
Quarter: 2018Q1

REPORT INFORMATION
  Report Type: Spontaneous
  Country: IT (occurrence: IT)
  Receive Date: 20180301
  Receipt Date: 20180302
  Transmission Date: 20180509
  Serious: Yes (Hospitalization, Other)
  Sender: FDA-Public Use
  Company Number: IT-PFIZER INC-2891738

PATIENT
  Age: 78 Year
  Sex: Male

DRUGS (6)
  1. FLUOROURACIL. [Suspect]
     Active Substance: FLUOROURACIL
     Indication: RECTAL CANCER
     Dosage: 4670 MG, FREQ: CYCLICAL
     Route: 042
     Dates: start: 20150504, end: 20150506
  2. IRINOTECAN HCL [Suspect]
     Active Substance: IRINOTECAN HYDROCHLORIDE
     Indication: RECTAL CANCER
     Dosage: 300 MG, FREQ: CYCLICAL
     Route: 042
     Dates: start: 20150504, end: 20150504
  3. ZALTRAP [Suspect]
     Active Substance: ZIV-AFLIBERCEPT
     Indication: RECTAL CANCER
     Dosage: 260 MG, FREQ: CYCLICAL
     Route: 042
     Dates: start: 20150504, end: 20150504
  4. LEDERFOLIN [Suspect]
     Active Substance: LEUCOVORIN CALCIUM
     Indication: RECTAL CANCER
     Dosage: 330 MG, FREQ: CYCLICAL
     Route: 042
     Dates: start: 20150504, end: 20150504
  5. LEDERFOLIN [Suspect]
     Active Substance: LEUCOVORIN CALCIUM
     Dosage: UNK
  6. ZALTRAP [Suspect]
     Active Substance: ZIV-AFLIBERCEPT
     Dosage: UNK

REACTIONS (3)
  - Haemorrhoidal haemorrhage [Recovered/Resolved]
  - Neutropenia [Recovered/Resolved]
  - Pulmonary embolism [Unknown]

NARRATIVE: CASE EVENT DATE: 20150513
